FAERS Safety Report 21695877 (Version 3)
Quarter: 2023Q1

REPORT INFORMATION
  Report Type: Spontaneous
  Country: US (occurrence: US)
  Receive Date: 20221207
  Receipt Date: 20230201
  Transmission Date: 20230418
  Serious: No
  Sender: FDA-Public Use
  Company Number: US-SA-SAC20221205001167

PATIENT
  Sex: Male

DRUGS (8)
  1. DUPIXENT [Suspect]
     Active Substance: DUPILUMAB
     Indication: Dermatitis atopic
     Dosage: 600 MG 1X
     Route: 058
     Dates: start: 202207, end: 202207
  2. DUPIXENT [Suspect]
     Active Substance: DUPILUMAB
     Dosage: 300 MG QOW
     Dates: start: 2022
  3. METHOCARBAMOL [Concomitant]
     Active Substance: METHOCARBAMOL
     Dosage: UNK
  4. ROBAXIN [Concomitant]
     Active Substance: METHOCARBAMOL
     Dosage: DOSE:500MG - FREQUENCY; 2X
     Dates: start: 20221008
  5. ATORVASTATIN [Concomitant]
     Active Substance: ATORVASTATIN
     Dosage: 1 TAB - DAILY
     Dates: start: 20220311
  6. GABAPENTIN [Concomitant]
     Active Substance: GABAPENTIN
     Dosage: 100MG- FREQUENCY: 1-2 CAPS
     Dates: start: 20221123
  7. NORVASC [Concomitant]
     Active Substance: AMLODIPINE BESYLATE
     Dosage: UNK
  8. AMLODIPINE BESYLATE [Concomitant]
     Active Substance: AMLODIPINE BESYLATE
     Dosage: 10MG, 1X

REACTIONS (6)
  - Fatigue [Unknown]
  - Skin swelling [Unknown]
  - Back pain [Unknown]
  - Chills [Unknown]
  - Erythema [Unknown]
  - Arthralgia [Unknown]
